FAERS Safety Report 8067563-9 (Version None)
Quarter: 2012Q1

REPORT INFORMATION
  Report Type: 
  Country: None (occurrence: None)
  Receive Date: 20120124
  Receipt Date: 20120118
  Transmission Date: 20120608
  Serious: Yes (Other)
  Sender: FDA-Public Use
  Company Number: US-PFIZER INC-2012014709

PATIENT
  Sex: Female

DRUGS (1)
  1. PREPARATION H MEDICATED WIPES [Suspect]
     Indication: HAEMORRHOIDS
     Dosage: UNK
     Route: 065

REACTIONS (1)
  - HAEMORRHOIDAL HAEMORRHAGE [None]
